FAERS Safety Report 7222750-4 (Version None)
Quarter: 2011Q1

REPORT INFORMATION
  Report Type: 
  Country: None (occurrence: None)
  Receive Date: 20110112
  Receipt Date: 20080903
  Transmission Date: 20110831
  Serious: Yes (Other)
  Sender: FDA-Public Use
  Company Number: PHHY2008DE11842

PATIENT
  Sex: Female
  Weight: 76.3 kg

DRUGS (3)
  1. MARCUMAR [Interacting]
     Indication: HEART VALVE OPERATION
     Route: 048
  2. EXELON [Suspect]
     Indication: VASCULAR DEMENTIA
     Dosage: 4.6 MG/ 24 H, 1 DAY
     Route: 062
  3. INSULIN [Concomitant]
     Indication: TYPE 2 DIABETES MELLITUS
     Dosage: 22-0-121 IU
     Route: 058

REACTIONS (4)
  - HYPOGLYCAEMIA [None]
  - BLOOD GLUCOSE FLUCTUATION [None]
  - DRUG INTERACTION [None]
  - THROMBIN TIME ABNORMAL [None]
